FAERS Safety Report 8253252-4 (Version None)
Quarter: 2012Q2

REPORT INFORMATION
  Report Type: 
  Country: None (occurrence: None)
  Receive Date: 20120402
  Receipt Date: 20120307
  Transmission Date: 20120825
  Serious: No
  Sender: FDA-Public Use
  Company Number: US-AMGEN-USASP2012015216

PATIENT
  Age: 39 Year
  Sex: Female

DRUGS (2)
  1. ENBREL [Suspect]
     Indication: PSORIATIC ARTHROPATHY
     Dosage: 50 MG, QWK
     Dates: start: 20120117
  2. ENBREL [Suspect]
     Indication: PSORIASIS

REACTIONS (7)
  - PSORIASIS [None]
  - IMPAIRED HEALING [None]
  - INJECTION SITE HAEMORRHAGE [None]
  - PAIN IN EXTREMITY [None]
  - BLISTER [None]
  - PSORIATIC ARTHROPATHY [None]
  - INJECTION SITE PAIN [None]
